FAERS Safety Report 8387787-0 (Version None)
Quarter: 2012Q2

REPORT INFORMATION
  Report Type: 
  Country: None (occurrence: None)
  Receive Date: 20120525
  Receipt Date: 20120515
  Transmission Date: 20120825
  Serious: Yes (Hospitalization)
  Sender: FDA-Public Use
  Company Number: FR-GLAXOSMITHKLINE-B0801496A

PATIENT
  Age: 83 Year
  Sex: Female

DRUGS (10)
  1. RHINOCORT [Concomitant]
  2. ARIXTRA [Suspect]
     Indication: ATRIAL FIBRILLATION
     Dosage: 7.5MG PER DAY
     Route: 058
     Dates: end: 20120412
  3. CORDARONE [Concomitant]
     Route: 048
  4. LERCANIDIPINE [Concomitant]
     Route: 048
  5. NEXIUM [Concomitant]
     Route: 048
  6. IRBESARTAN [Concomitant]
     Route: 048
  7. PENTOXIFYLLINE [Suspect]
     Indication: ATRIAL FIBRILLATION
     Dosage: 10MG PER DAY
     Route: 048
     Dates: end: 20120412
  8. BISOPROLOL FUMARATE [Concomitant]
     Route: 048
  9. VITAMIN D [Concomitant]
  10. FENOFIBRATE [Concomitant]

REACTIONS (12)
  - CONVULSION [None]
  - DISORIENTATION [None]
  - MEMORY IMPAIRMENT [None]
  - CEREBELLAR HAEMATOMA [None]
  - ENCEPHALOMALACIA [None]
  - AGITATION [None]
  - NERVOUS SYSTEM DISORDER [None]
  - CONFUSIONAL STATE [None]
  - DISTURBANCE IN ATTENTION [None]
  - DILATATION VENTRICULAR [None]
  - SOMNOLENCE [None]
  - OFF LABEL USE [None]
